FAERS Safety Report 20082903 (Version 5)
Quarter: 2022Q1

REPORT INFORMATION
  Report Type: Report from Study
  Country: KR (occurrence: None)
  Receive Date: 20211117
  Receipt Date: 20220301
  Transmission Date: 20220423
  Serious: Yes (Hospitalization, Other)
  Sender: FDA-Public Use
  Company Number: KR-Eisai Medical Research-EC-2021-103088

PATIENT
  Age: 71 Year
  Sex: Male
  Weight: 80.7 kg

DRUGS (5)
  1. LENVIMA [Suspect]
     Active Substance: LENVATINIB
     Indication: Malignant melanoma
     Route: 048
     Dates: start: 20200117, end: 20200207
  2. KEYTRUDA [Suspect]
     Active Substance: PEMBROLIZUMAB
     Indication: Malignant melanoma
     Route: 042
     Dates: start: 20200117, end: 20200207
  3. KEYTRUDA [Suspect]
     Active Substance: PEMBROLIZUMAB
     Route: 042
     Dates: start: 20200311
  4. TRISONE [Concomitant]
     Indication: Infection
     Route: 042
     Dates: start: 20191226, end: 20191230
  5. METRONIDAZOLE [Concomitant]
     Active Substance: METRONIDAZOLE
     Indication: Infection
     Route: 042
     Dates: start: 20191226, end: 20191230

REACTIONS (3)
  - Atrial fibrillation [Not Recovered/Not Resolved]
  - Immune-mediated hepatitis [Recovered/Resolved]
  - Herpes virus infection [Recovered/Resolved]

NARRATIVE: CASE EVENT DATE: 20200131
